FAERS Safety Report 10094523 (Version 1)
Quarter: 2014Q2

REPORT INFORMATION
  Report Type: Spontaneous
  Country: US (occurrence: None)
  Receive Date: 20140421
  Receipt Date: 20140421
  Transmission Date: 20141212
  Serious: Yes (Life-Threatening, Disabling)
  Sender: FDA-Public Use
  Company Number: None

PATIENT
  Age: 54 Year
  Sex: Female

DRUGS (2)
  1. NORCO [Suspect]
     Indication: PAIN
     Dosage: X1 EVERY 6 HRS, FOUR TIMES DIALY, TAKEN BY MOUTH
     Route: 048
  2. NORCO [Suspect]
     Indication: ADDISON^S DISEASE
     Dosage: X1 EVERY 6 HRS, FOUR TIMES DIALY, TAKEN BY MOUTH
     Route: 048

REACTIONS (3)
  - Product colour issue [None]
  - Ulcer [None]
  - Product contamination microbial [None]
